FAERS Safety Report 19562425 (Version 2)
Quarter: 2021Q4

REPORT INFORMATION
  Report Type: Report from Study
  Country: ES (occurrence: ES)
  Receive Date: 20210715
  Receipt Date: 20211125
  Transmission Date: 20220303
  Serious: Yes (Other)
  Sender: FDA-Public Use
  Company Number: ES-SA-SAC20210714001198

PATIENT
  Age: 38 Year

DRUGS (9)
  1. ALEMTUZUMAB [Suspect]
     Active Substance: ALEMTUZUMAB
     Indication: Relapsing-remitting multiple sclerosis
     Dosage: UNK
     Dates: start: 20180312, end: 20180316
  2. ALEMTUZUMAB [Suspect]
     Active Substance: ALEMTUZUMAB
  3. DALFAMPRIDINE [Concomitant]
     Active Substance: DALFAMPRIDINE
     Indication: Multiple sclerosis
     Dosage: 10 MG, QD
     Dates: start: 20170329
  4. BIOTIN [Concomitant]
     Active Substance: BIOTIN
     Indication: Multiple sclerosis
     Dosage: 300 MG, QD
     Dates: start: 20170920
  5. BACLOFEN [Concomitant]
     Active Substance: BACLOFEN
     Indication: Muscle spasticity
     Dosage: 50 MG
     Dates: start: 2016, end: 20190227
  6. ACYCLOVIR [Concomitant]
     Active Substance: ACYCLOVIR
     Indication: Prophylaxis
     Dosage: 200 MG, Q12H
     Dates: start: 20180311, end: 20180611
  7. SULFAMETHOXAZOLE AND TRIMETHOPRIM [Concomitant]
     Active Substance: SULFAMETHOXAZOLE\TRIMETHOPRIM
     Indication: Prophylaxis
     Dosage: DOSE 800 / 160MG, Q3W
     Dates: start: 20180311, end: 20180611
  8. THIAMINE HYDROCHLORIDE [Concomitant]
     Active Substance: THIAMINE HYDROCHLORIDE
  9. CALCIFEDIOL [Concomitant]
     Active Substance: CALCIFEDIOL

REACTIONS (2)
  - Expanded disability status scale score increased [Not Recovered/Not Resolved]
  - Rash [Recovered/Resolved]

NARRATIVE: CASE EVENT DATE: 20180312
